FAERS Safety Report 7941153-8 (Version None)
Quarter: 2011Q4

REPORT INFORMATION
  Report Type: 
  Country: None (occurrence: None)
  Receive Date: 20111114
  Receipt Date: 20110830
  Transmission Date: 20120403
  Serious: Yes (Other)
  Sender: FDA-Public Use
  Company Number: 2011S1000566

PATIENT
  Age: 51 Year
  Sex: Male

DRUGS (2)
  1. CUBICIN [Suspect]
     Indication: BACTERAEMIA
     Dosage: 8 MG/KG
  2. CUBICIN [Suspect]
     Indication: OSTEOMYELITIS
     Dosage: 8 MG/KG

REACTIONS (1)
  - RHABDOMYOLYSIS [None]
